FAERS Safety Report 5761372-9 (Version None)
Quarter: 2008Q2

REPORT INFORMATION
  Report Type: 
  Country: None (occurrence: None)
  Receive Date: 20080606
  Receipt Date: 20080602
  Transmission Date: 20081010
  Serious: Yes (Other)
  Sender: FDA-Public Use
  Company Number: CA-ASTRAZENECA-2008UW10736

PATIENT
  Age: 637 Month
  Sex: Male
  Weight: 76.8 kg

DRUGS (5)
  1. CRESTOR [Suspect]
     Indication: BLOOD CHOLESTEROL
     Route: 048
     Dates: start: 20030201, end: 20080518
  2. TIOVAN [Concomitant]
     Indication: HYPERTENSION
     Dates: start: 20030201
  3. METFORMIN HCL [Concomitant]
     Indication: DIABETES MELLITUS
     Dates: start: 19980501
  4. LEBEMIR INSULIN [Concomitant]
     Dates: start: 20060501
  5. NOVORAPID INSULIN [Concomitant]
     Indication: DIABETES MELLITUS
     Dates: start: 20060501

REACTIONS (2)
  - MOVEMENT DISORDER [None]
  - MYALGIA [None]
